FAERS Safety Report 9484366 (Version 1)
Quarter: 2013Q3

REPORT INFORMATION
  Report Type: Spontaneous
  Country: US (occurrence: US)
  Receive Date: 20130828
  Receipt Date: 20130828
  Transmission Date: 20140515
  Serious: Yes (Other)
  Sender: FDA-Public Use
  Company Number: US-AMGEN-KDL415301

PATIENT
  Age: 49 Year
  Sex: Male

DRUGS (2)
  1. ENBREL [Suspect]
     Indication: RHEUMATOID ARTHRITIS
     Dosage: 50 MG, QWK
     Route: 058
     Dates: start: 20080501
  2. METHOTREXATE [Concomitant]

REACTIONS (5)
  - Liver disorder [Recovered/Resolved]
  - Spleen disorder [Recovered/Resolved]
  - Hepatic enzyme increased [Recovered/Resolved]
  - Impaired healing [Unknown]
  - Nasopharyngitis [Unknown]
